FAERS Safety Report 23702279 (Version 1)
Quarter: 2024Q2

REPORT INFORMATION
  Report Type: Spontaneous
  Country: US (occurrence: US)
  Receive Date: 20240403
  Receipt Date: 20240403
  Transmission Date: 20240715
  Serious: No
  Sender: FDA-Public Use
  Company Number: US-SA-SAC20240401000703

PATIENT
  Sex: Female
  Weight: 119.29 kg

DRUGS (2)
  1. DUPIXENT [Suspect]
     Active Substance: DUPILUMAB
     Indication: Asthma
     Dosage: 300 MG, QOW
     Route: 058
  2. DEVICE [Suspect]
     Active Substance: DEVICE
     Dosage: UNK

REACTIONS (2)
  - Pain [Unknown]
  - Gait inability [Unknown]
